FAERS Safety Report 12661477 (Version 1)
Quarter: 2016Q3

REPORT INFORMATION
  Report Type: Spontaneous
  Country: DE (occurrence: DE)
  Receive Date: 20160817
  Receipt Date: 20160817
  Transmission Date: 20161109
  Serious: Yes (Life-Threatening, Hospitalization, Other)
  Sender: FDA-Public Use
  Company Number: DE-MYLANLABS-2016M1016454

PATIENT

DRUGS (4)
  1. AZATHIOPRINE MYLAN [Suspect]
     Active Substance: AZATHIOPRINE
     Indication: CROHN^S DISEASE
     Dosage: 150 MG, QD (DAILY DOSE: 150 MG MILLGRAM(S) EVERY DAYS)
     Route: 048
     Dates: start: 2011
  2. ESOMEPRAZOL                        /01479301/ [Concomitant]
     Active Substance: ESOMEPRAZOLE
     Indication: GASTROOESOPHAGEAL REFLUX DISEASE
     Dosage: 40 MG, UNK (B. BEDARF)
     Route: 048
     Dates: start: 20150529
  3. HUMIRA [Suspect]
     Active Substance: ADALIMUMAB
     Indication: CROHN^S DISEASE
     Dosage: 40 MG, BIWEEKLY (DAILY DOSE: 40 MG MILLGRAM(S) EVERY 2 WEEKS)
     Route: 058
     Dates: start: 201201
  4. IBEROGAST [Concomitant]
     Active Substance: HERBALS
     Indication: IRRITABLE BOWEL SYNDROME
     Dosage: 20 GTT, TID (DAILY DOSE: 60 GTT DROP(S) EVERY DAYS)
     Route: 048

REACTIONS (4)
  - Gastritis [Unknown]
  - Disseminated tuberculosis [Recovering/Resolving]
  - Lymphadenopathy [Unknown]
  - Hiatus hernia [Unknown]

NARRATIVE: CASE EVENT DATE: 20160114
